FAERS Safety Report 10370131 (Version 1)
Quarter: 2014Q3

REPORT INFORMATION
  Report Type: Spontaneous
  Country: FR (occurrence: FR)
  Receive Date: 20140808
  Receipt Date: 20140808
  Transmission Date: 20150326
  Serious: Yes (Life-Threatening, Hospitalization)
  Sender: FDA-Public Use
  Company Number: FR-BRISTOL-MYERS SQUIBB COMPANY-21261953

PATIENT
  Age: 57 Year
  Sex: Male

DRUGS (6)
  1. LYSANXIA [Suspect]
     Active Substance: PRAZEPAM
     Indication: SUICIDAL IDEATION
     Route: 048
     Dates: start: 20140610, end: 20140613
  2. ABILIFY [Suspect]
     Active Substance: ARIPIPRAZOLE
     Indication: DELIRIUM
     Route: 048
     Dates: start: 20140610, end: 20140613
  3. ABILIFY [Suspect]
     Active Substance: ARIPIPRAZOLE
     Indication: SUICIDAL IDEATION
     Route: 048
     Dates: start: 20140610, end: 20140613
  4. ABILIFY [Suspect]
     Active Substance: ARIPIPRAZOLE
     Indication: ABNORMAL BEHAVIOUR
     Route: 048
     Dates: start: 20140610, end: 20140613
  5. LYSANXIA [Suspect]
     Active Substance: PRAZEPAM
     Indication: ABNORMAL BEHAVIOUR
     Route: 048
     Dates: start: 20140610, end: 20140613
  6. LYSANXIA [Suspect]
     Active Substance: PRAZEPAM
     Indication: DELIRIUM
     Route: 048
     Dates: start: 20140610, end: 20140613

REACTIONS (5)
  - Neuroleptic malignant syndrome [Recovering/Resolving]
  - Off label use [Unknown]
  - Renal failure acute [Recovering/Resolving]
  - Acute pulmonary oedema [Recovering/Resolving]
  - Extrapyramidal disorder [Recovering/Resolving]

NARRATIVE: CASE EVENT DATE: 201406
